FAERS Safety Report 5720391-9 (Version None)
Quarter: 2008Q2

REPORT INFORMATION
  Report Type: 
  Country: None (occurrence: None)
  Receive Date: 20080428
  Receipt Date: 20080421
  Transmission Date: 20081010
  Serious: Yes (Hospitalization)
  Sender: FDA-Public Use
  Company Number: US-BOEHRINGER INGELHEIM GMBH, GERMANY-2008-BP-04917BP

PATIENT
  Age: 53 Year
  Sex: Male

DRUGS (5)
  1. AGGRENOX [Suspect]
     Indication: TRANSIENT ISCHAEMIC ATTACK
     Route: 048
     Dates: start: 20080317, end: 20080318
  2. LIPITOR [Concomitant]
     Dates: start: 20060301
  3. PREVACID [Concomitant]
     Dates: start: 20060301
  4. ALLOPURINOL [Concomitant]
     Dates: start: 20060301
  5. LISINOPRIL [Concomitant]
     Dates: start: 20060301

REACTIONS (1)
  - CHEST PAIN [None]
